FAERS Safety Report 25685316 (Version 2)
Quarter: 2025Q3

REPORT INFORMATION
  Report Type: Spontaneous
  Country: US (occurrence: US)
  Receive Date: 20250815
  Receipt Date: 20250822
  Transmission Date: 20251021
  Serious: Yes (Hospitalization, Disabling)
  Sender: MACLEODS
  Company Number: US-MACLEODS PHARMA-MAC2025054642

PATIENT

DRUGS (3)
  1. ESCITALOPRAM [Suspect]
     Active Substance: ESCITALOPRAM OXALATE
     Indication: Product used for unknown indication
     Route: 065
  2. BUPROPION\DEXTROMETHORPHAN [Suspect]
     Active Substance: BUPROPION\DEXTROMETHORPHAN
     Indication: Major depression
     Dosage: 45 MG/105 MG
     Route: 065
  3. CARVEDILOL [Concomitant]
     Active Substance: CARVEDILOL
     Indication: Product used for unknown indication
     Route: 065

REACTIONS (4)
  - Delirium [Recovering/Resolving]
  - Serotonin syndrome [Recovered/Resolved]
  - Toxic encephalopathy [Recovered/Resolved]
  - Drug interaction [Recovered/Resolved]
